FAERS Safety Report 18248950 (Version 1)
Quarter: 2020Q3

REPORT INFORMATION
  Report Type: Spontaneous
  Country: US (occurrence: US)
  Receive Date: 20200909
  Receipt Date: 20200909
  Transmission Date: 20201103
  Serious: No
  Sender: FDA-Public Use
  Company Number: US-PERRIGO-20US011405

PATIENT
  Age: 71 Year
  Sex: Male
  Weight: 81.63 kg

DRUGS (1)
  1. ALBUTEROL SULFATE. [Suspect]
     Active Substance: ALBUTEROL SULFATE
     Indication: ASTHMA
     Dosage: UNKNOWN, PRN
     Route: 055
     Dates: start: 20200713, end: 20200806

REACTIONS (5)
  - Feeling jittery [Recovered/Resolved]
  - Device delivery system issue [Recovered/Resolved]
  - Nervousness [Recovered/Resolved]
  - Incorrect dose administered [Recovered/Resolved]
  - Palpitations [Recovered/Resolved]

NARRATIVE: CASE EVENT DATE: 2020
